FAERS Safety Report 22620904 (Version 1)
Quarter: 2023Q2

REPORT INFORMATION
  Report Type: Spontaneous
  Country: US (occurrence: None)
  Receive Date: 20230617
  Receipt Date: 20230617
  Transmission Date: 20230721
  Serious: No
  Sender: FDA-Public Use
  Company Number: None

PATIENT
  Age: 41 Year
  Weight: 67.95 kg

DRUGS (5)
  1. GABAPENTIN [Suspect]
     Active Substance: GABAPENTIN
     Indication: Anxiety
     Dosage: OTHER QUANTITY : 1 CAPSULE(S);?FREQUENCY : TWICE A DAY;?
     Route: 048
     Dates: start: 20230602, end: 20230604
  2. GABAPENTIN [Suspect]
     Active Substance: GABAPENTIN
     Indication: Alcohol use disorder
  3. ESTRADIOL [Concomitant]
     Active Substance: ESTRADIOL
  4. ESCITALOPRAM [Concomitant]
     Active Substance: ESCITALOPRAM OXALATE
  5. AMLODIPINE [Concomitant]
     Active Substance: AMLODIPINE BESYLATE

REACTIONS (1)
  - Mania [None]

NARRATIVE: CASE EVENT DATE: 20230604
